FAERS Safety Report 25592721 (Version 2)
Quarter: 2025Q3

REPORT INFORMATION
  Report Type: Spontaneous
  Country: US (occurrence: US)
  Receive Date: 20250722
  Receipt Date: 20250728
  Transmission Date: 20251020
  Serious: Yes (Other)
  Sender: PFIZER
  Company Number: US-MLMSERVICE-20250710-PI575194-00312-1

PATIENT
  Age: 48 Year
  Sex: Male

DRUGS (1)
  1. TESTOSTERONE CYPIONATE [Suspect]
     Active Substance: TESTOSTERONE CYPIONATE
     Indication: Muscle building therapy
     Dosage: UNK, WEEKLY
     Route: 042

REACTIONS (5)
  - Drug abuse [Unknown]
  - Polycythaemia [Unknown]
  - Haemoglobin increased [Unknown]
  - Lung diffusion test abnormal [Unknown]
  - Off label use [Unknown]
